FAERS Safety Report 15407799 (Version 2)
Quarter: 2018Q3

REPORT INFORMATION
  Report Type: Report from Study
  Country: US (occurrence: US)
  Receive Date: 20180920
  Receipt Date: 20180925
  Transmission Date: 20181010
  Serious: Yes (Hospitalization)
  Sender: FDA-Public Use
  Company Number: US-PFIZER INC-2018366327

PATIENT
  Age: 67 Year
  Sex: Female
  Weight: 54 kg

DRUGS (26)
  1. TYLENOL [Concomitant]
     Active Substance: ACETAMINOPHEN
     Dosage: 650 MG, 3X/DAY AS NEEDED
     Route: 048
  2. COQ10, UBIQUINOL [Concomitant]
     Dosage: 1 TABLET, EVERY MORNING
     Route: 048
  3. SENOKOT [Concomitant]
     Active Substance: SENNOSIDES
     Indication: CONSTIPATION
     Dosage: 1 DF = 1 TABLET, BID AS NEEDED
     Route: 048
  4. ALBUTEROL [SALBUTAMOL] [Concomitant]
     Active Substance: ALBUTEROL
     Indication: WHEEZING
     Dosage: INHALATION. 90 MCG/ACTUATION INHALER INHALE 2 PUFFS INTO THE LUNGS EVERY 4 TO 6 HOURS AS NEEDED
     Route: 065
  5. ZOFRAN [ONDANSETRON] [Concomitant]
     Indication: NAUSEA
     Dosage: 1 DF, Q8H AS NEEDED. 1 DF= 8 MG TABLET.
     Route: 048
  6. ULTRAM [TRAMADOL HYDROCHLORIDE] [Concomitant]
     Indication: PAIN
     Dosage: 1 DF, TID
     Route: 048
  7. LOTENSIN HCT [Concomitant]
     Active Substance: BENAZEPRIL HYDROCHLORIDE\HYDROCHLOROTHIAZIDE
     Dosage: 1 DF, QD (10? 12.5 MG PER TABLET. 1 DF= 1 TABLET PER DAY.)
     Route: 048
  8. FRAGMIN [Suspect]
     Active Substance: DALTEPARIN SODIUM
     Indication: PORTAL VEIN THROMBOSIS
     Dosage: 10000 IU, DAILY
     Route: 058
     Dates: start: 20170907, end: 20170930
  9. COMPAZINE [PROCHLORPERAZINE EDISYLATE] [Concomitant]
     Indication: NAUSEA
     Dosage: 1 DF, Q6H AS NEEDED
     Route: 048
  10. SIMETHICONE (DIMETHICONE) [Concomitant]
     Active Substance: DIMETHICONE
     Indication: FLATULENCE
     Dosage: 1 DF = 125 MG TABLET, Q6H AS NEEDED
     Route: 048
  11. NAPROSYN E [Concomitant]
     Active Substance: NAPROXEN
     Dosage: 250 MG, 2X/DAY WITH MEALS
     Route: 048
  12. VALIUM [Concomitant]
     Active Substance: DIAZEPAM
     Indication: ANXIETY
     Dosage: 1 MG 2 TIMES A DAY AS NEEDED
     Route: 048
  13. SEROQUEL [Concomitant]
     Active Substance: QUETIAPINE FUMARATE
     Dosage: 1 DF, UNK (1 TABLET AT BED TIME)
     Route: 048
  14. CALCIUM 600 + D3 [Concomitant]
     Dosage: 600 MG AND 1500 MG/200 IU, 2X/DAY
     Route: 048
  15. IMODIUM [Concomitant]
     Active Substance: LOPERAMIDE HYDROCHLORIDE
     Indication: DIARRHOEA
     Dosage: 1 DF = 2 MG TOTAL, PRN
     Route: 048
  16. GLYCOLAX [Concomitant]
     Active Substance: POLYETHYLENE GLYCOL 3350
     Indication: CONSTIPATION
     Dosage: 17 G POWDER, AS NEEDED
     Route: 048
  17. CELEXA [CITALOPRAM HYDROBROMIDE] [Concomitant]
     Dosage: 10 MG, 1X/DAY
     Route: 048
  18. CELEXA [CITALOPRAM HYDROBROMIDE] [Concomitant]
     Dosage: 1 DF = 1 TABLET, QD
     Route: 048
  19. DULCOLAX (BISACODYL) [Concomitant]
     Active Substance: BISACODYL
     Indication: CONSTIPATION
     Dosage: 1 DF, QD (ENTERIC COATED TABLET. 1 DF= 1 TABLET AS NEEDED)
     Route: 048
  20. LIDODERM [Concomitant]
     Active Substance: LIDOCAINE
     Dosage: 1 DF, DAILY: APPLY PATCH TO BACK FOR 12 HRS THEN REMOVE FOR 12 HRS
     Route: 061
  21. MS CONTIN [Concomitant]
     Active Substance: MORPHINE SULFATE
     Dosage: 1 DF = 15 MG TABLET, BID
     Route: 048
  22. APIXABAN [Suspect]
     Active Substance: APIXABAN
     Indication: EMBOLISM VENOUS
     Dosage: NO DOSE GIVEN
     Route: 065
  23. ALLEGRA [Concomitant]
     Active Substance: FEXOFENADINE HYDROCHLORIDE
     Dosage: 1 DF, QD AS NEEDED
     Route: 048
  24. LOPRESSOR [Concomitant]
     Active Substance: METOPROLOL TARTRATE
     Dosage: 12.5 MG, BID (0.5 TABLET)
     Route: 048
  25. PROVENTIL HFA;VENTOLIN HFA [Concomitant]
     Indication: WHEEZING
     Dosage: ACTUATION INHALER/INHALE 2 PUFFS INTO THE LUNGS EVERY 4 HOURS AS NEEDED
     Route: 055
  26. GLUCOPHAGE [Concomitant]
     Active Substance: METFORMIN HYDROCHLORIDE
     Dosage: 1 DF = 500 MG. WITH MEALS, BID
     Route: 048

REACTIONS (7)
  - Constipation [Unknown]
  - Mental status changes [Unknown]
  - Acute kidney injury [Unknown]
  - Hypokalaemia [Unknown]
  - Ascites [Unknown]
  - Dehydration [Unknown]
  - Abdominal pain [Unknown]

NARRATIVE: CASE EVENT DATE: 20170912
